FAERS Safety Report 25663889 (Version 1)
Quarter: 2025Q3

REPORT INFORMATION
  Report Type: Spontaneous
  Country: US (occurrence: US)
  Receive Date: 20250811
  Receipt Date: 20250811
  Transmission Date: 20251021
  Serious: No
  Sender: DR REDDYS
  Company Number: US-DRL-USA-USA/2025/08/012034

PATIENT
  Age: 30 Year
  Sex: Male

DRUGS (9)
  1. CYCLOPHOSPHAMIDE [Suspect]
     Active Substance: CYCLOPHOSPHAMIDE
     Indication: Eosinophilic granulomatosis with polyangiitis
     Route: 042
  2. CYCLOPHOSPHAMIDE [Suspect]
     Active Substance: CYCLOPHOSPHAMIDE
     Dosage: MONTHLY IV CYCLOPHOSPHAMIDE
     Route: 042
  3. METHYLPREDNISOLONE [Concomitant]
     Active Substance: METHYLPREDNISOLONE
     Indication: Eosinophilic granulomatosis with polyangiitis
  4. sodium 2-mercapto-ethane sulfonate [Concomitant]
     Indication: Eosinophilic granulomatosis with polyangiitis
  5. PREDNISONE [Concomitant]
     Active Substance: PREDNISONE
     Indication: Eosinophilic granulomatosis with polyangiitis
     Dosage: 60 MG DAILY FOR 2 WEEKS
  6. ASPIRIN [Concomitant]
     Active Substance: ASPIRIN
     Indication: Vasospasm
  7. LOSARTAN [Concomitant]
     Active Substance: LOSARTAN
     Indication: Vasospasm
  8. COLCHICINE [Concomitant]
     Active Substance: COLCHICINE
     Indication: Viral myocarditis
  9. NITROGLYCERIN [Concomitant]
     Active Substance: NITROGLYCERIN
     Indication: Chest pain

REACTIONS (3)
  - Sinusitis [Unknown]
  - Disease recurrence [Unknown]
  - Product use in unapproved indication [Unknown]
